FAERS Safety Report 15171057 (Version 4)
Quarter: 2020Q1

REPORT INFORMATION
  Report Type: Report from Study
  Country: FR (occurrence: FR)
  Receive Date: 20180720
  Receipt Date: 20200210
  Transmission Date: 20200409
  Serious: Yes (Hospitalization)
  Sender: FDA-Public Use
  Company Number: FR-ROCHE-2155282

PATIENT
  Age: 70 Year
  Sex: Male
  Weight: 125 kg

DRUGS (9)
  1. COBIMETINIB. [Suspect]
     Active Substance: COBIMETINIB
     Indication: MALIGNANT MELANOMA
     Dosage: 60 MG TABLETS ORALLY ONCE DAILY ON A 21 DAYS ON, 7 DAYS OFF SCHEDULE.?DATE OF MOST RECENT DOSE OF CO
     Route: 048
     Dates: start: 20180627
  2. ATEZOLIZUMAB. [Suspect]
     Active Substance: ATEZOLIZUMAB
     Indication: MALIGNANT MELANOMA
     Dosage: 840 MG AS IV INFUSION ONCE IN EVERY 2 WEEK,?DOSE OF LAST ATEZOLIZUMAB ADMINISTERED PRIOR TO AE ONSET
     Route: 041
     Dates: start: 20180627
  3. BETNEVAL [Concomitant]
     Active Substance: BETAMETHASONE VALERATE
     Indication: FOLLICULITIS
     Dosage: ONGOING
     Route: 061
     Dates: start: 20180716, end: 20180717
  4. SERESTA [Concomitant]
     Active Substance: OXAZEPAM
     Indication: ANXIETY
     Route: 048
     Dates: start: 20180713, end: 20180714
  5. TEGRETOL [Concomitant]
     Active Substance: CARBAMAZEPINE
     Indication: NEURALGIA
     Route: 048
     Dates: start: 20180716, end: 20180716
  6. PARACETAMOL [Concomitant]
     Active Substance: ACETAMINOPHEN
     Dosage: ONGOING
     Route: 065
     Dates: start: 20180713
  7. EXFORGE [Concomitant]
     Active Substance: AMLODIPINE BESYLATE\VALSARTAN
     Indication: HYPERTENSION
     Route: 048
     Dates: start: 201401, end: 20190506
  8. AMLOR [Concomitant]
     Active Substance: AMLODIPINE BESYLATE
     Indication: HYPERTENSION
     Route: 048
     Dates: start: 20180713, end: 20180717
  9. DOXYCYCLINE. [Concomitant]
     Active Substance: DOXYCYCLINE
     Indication: FOLLICULITIS
     Route: 048
     Dates: start: 20180714, end: 20180717

REACTIONS (3)
  - Renal failure [Recovered/Resolved]
  - Diarrhoea [Recovered/Resolved]
  - Rhabdomyolysis [Recovered/Resolved]

NARRATIVE: CASE EVENT DATE: 20180629
